FAERS Safety Report 9322374 (Version 2)
Quarter: 2013Q3

REPORT INFORMATION
  Report Type: Spontaneous
  Country: US (occurrence: US)
  Receive Date: 20130531
  Receipt Date: 20130712
  Transmission Date: 20140515
  Serious: Yes (Other)
  Sender: FDA-Public Use
  Company Number: US-AMGEN-USASP2013037604

PATIENT
  Age: 71 Year
  Sex: Female
  Weight: 69 kg

DRUGS (13)
  1. EPOGEN [Suspect]
     Indication: PRODUCT USED FOR UNKNOWN INDICATION
     Dosage: 28000 UNIT, 3 TIMES/WK
     Route: 065
     Dates: start: 20121218
  2. FOLIC ACID [Concomitant]
     Dosage: UNK
  3. INSULIN [Concomitant]
     Dosage: UNK
  4. PROGRAF [Concomitant]
     Dosage: UNK
  5. BICITRA                            /00586801/ [Concomitant]
     Dosage: UNK
  6. OMNICEF                            /00497602/ [Concomitant]
     Dosage: UNK
  7. MIDODRINE [Concomitant]
     Dosage: UNK
  8. DOCUSATE [Concomitant]
     Dosage: UNK
  9. FISH OIL [Concomitant]
     Dosage: UNK
  10. CLONIDINE [Concomitant]
     Dosage: UNK
  11. NIFEDIPINE [Concomitant]
     Dosage: UNK
  12. MULTIVITAMINS, PLAIN [Concomitant]
     Dosage: UNK
  13. IRON [Concomitant]
     Dosage: UNK

REACTIONS (2)
  - Haemoglobin decreased [Unknown]
  - Therapeutic response decreased [Unknown]
